FAERS Safety Report 6823572-6 (Version None)
Quarter: 2010Q3

REPORT INFORMATION
  Report Type: 
  Country: None (occurrence: None)
  Receive Date: 20100708
  Receipt Date: 20060803
  Transmission Date: 20110219
  Serious: No
  Sender: FDA-Public Use
  Company Number: US-PFIZER INC-2006096918

PATIENT
  Sex: Female

DRUGS (13)
  1. CHANTIX [Suspect]
     Indication: SMOKING CESSATION THERAPY
     Route: 065
     Dates: start: 20060724
  2. TARKA [Concomitant]
     Route: 048
  3. SPIRIVA [Concomitant]
     Route: 048
  4. NEURONTIN [Concomitant]
     Route: 048
  5. MOBIC [Concomitant]
     Route: 048
  6. CYMBALTA [Concomitant]
     Route: 048
  7. XANAX [Concomitant]
     Route: 048
  8. ADVAIR DISKUS 100/50 [Concomitant]
     Route: 048
  9. FOSAMAX [Concomitant]
     Route: 048
  10. ACETYLSALICYLIC ACID [Concomitant]
     Route: 048
  11. CYANOCOBALAMIN [Concomitant]
     Route: 048
  12. VITAMIN C [Concomitant]
     Route: 048
  13. CALCIUM CARBONATE [Concomitant]
     Route: 048

REACTIONS (2)
  - DECREASED APPETITE [None]
  - NAUSEA [None]
